FAERS Safety Report 19891587 (Version 1)
Quarter: 2021Q3

REPORT INFORMATION
  Report Type: Spontaneous
  Country: US (occurrence: US)
  Receive Date: 20210928
  Receipt Date: 20210928
  Transmission Date: 20211014
  Serious: No
  Sender: FDA-Public Use
  Company Number: US-BEH-2021136248

PATIENT
  Sex: Female

DRUGS (1)
  1. HIZENTRA [Suspect]
     Active Substance: HUMAN IMMUNOGLOBULIN G
     Indication: MULTIFOCAL MOTOR NEUROPATHY
     Dosage: 35 GRAM, QW (DAILY FOR 2 DAYS PER WEEK)
     Route: 058
     Dates: start: 202101

REACTIONS (3)
  - No adverse event [Unknown]
  - Off label use [Unknown]
  - Weight fluctuation [Unknown]
